FAERS Safety Report 19679425 (Version 1)
Quarter: 2021Q3

REPORT INFORMATION
  Report Type: Spontaneous
  Country: US (occurrence: US)
  Receive Date: 20210809
  Receipt Date: 20210809
  Transmission Date: 20211014
  Serious: Yes (Hospitalization)
  Sender: FDA-Public Use
  Company Number: None

PATIENT
  Sex: Female

DRUGS (7)
  1. HUMIRA [Suspect]
     Active Substance: ADALIMUMAB
     Indication: COLITIS ULCERATIVE
     Route: 058
     Dates: start: 20201023
  2. ASPIRIN. [Concomitant]
     Active Substance: ASPIRIN
  3. ATORVASTATIN [Concomitant]
     Active Substance: ATORVASTATIN
  4. FOLIC ACID. [Concomitant]
     Active Substance: FOLIC ACID
  5. CIPROFLOXACN [Concomitant]
     Active Substance: CIPROFLOXACIN
  6. CARVEDILOL. [Concomitant]
     Active Substance: CARVEDILOL
  7. DOXYCYC MONO [Concomitant]
     Active Substance: DOXYCYCLINE

REACTIONS (5)
  - Infection [None]
  - Blood disorder [None]
  - Neoplasm malignant [None]
  - Hernia [None]
  - Therapy interrupted [None]
